FAERS Safety Report 10240581 (Version 1)
Quarter: 2014Q1

REPORT INFORMATION
  Report Type: Spontaneous
  Country: US (occurrence: None)
  Receive Date: 20140306
  Receipt Date: 20140306
  Transmission Date: 20141002
  Serious: Yes (Hospitalization)
  Sender: FDA-Public Use
  Company Number: 163-21880-13034714

PATIENT
  Age: 76 Year
  Sex: Female
  Weight: 100.25 kg

DRUGS (10)
  1. REVLIMID [Suspect]
     Indication: PLASMA CELL MYELOMA
     Route: 048
     Dates: start: 20110101
  2. AMIODARONE HCL (AMIODARONE HYDROCHLORIDE) (UNKNOWN) [Concomitant]
  3. ATORVASTATIN CALCIUM (ATORVASTATIN CALCIUM) (UNKNOWN) [Concomitant]
  4. BYETTA (EXENATIDE) (UNKNOWN) [Concomitant]
  5. CLOPIDOGREL (CLOPIDOGREL) (UNKNOWN) [Concomitant]
  6. COUMADIN (WARFARIN SODIUM) (TABLETS) [Concomitant]
  7. DEXAMETHASONE (DEXAMETHASONE) (UNKNOWN) [Concomitant]
  8. GLIMEPIRIDE (GLIMEPIRIDE) (TABLETS) [Concomitant]
  9. METOPROLOL SUCCINATE (METOPROLOL SUCCINATE) (UNKNOWN) [Concomitant]
  10. FUROSEMIDE (FUROSEMIDE) (UNKNOWN) [Concomitant]

REACTIONS (2)
  - Oedema peripheral [None]
  - Pollakiuria [None]
